FAERS Safety Report 9750960 (Version 2)
Quarter: 2013Q4

REPORT INFORMATION
  Report Type: Spontaneous
  Country: US (occurrence: US)
  Receive Date: 20131212
  Receipt Date: 20131213
  Transmission Date: 20140711
  Serious: Yes (Other)
  Sender: FDA-Public Use
  Company Number: US-TEVA-400243USA

PATIENT
  Age: 30 Year
  Sex: Female
  Weight: 68.1 kg

DRUGS (1)
  1. PARAGARD 380A [Suspect]
     Indication: CONTRACEPTION
     Route: 015
     Dates: end: 20130506

REACTIONS (8)
  - Embedded device [Recovered/Resolved]
  - Weight decreased [Not Recovered/Not Resolved]
  - Vaginal infection [Unknown]
  - Pelvic pain [Not Recovered/Not Resolved]
  - Discomfort [Not Recovered/Not Resolved]
  - Menstruation delayed [Recovered/Resolved]
  - Pain [Recovered/Resolved]
  - Complication of device removal [Recovered/Resolved]
